FAERS Safety Report 9792229 (Version 2)
Quarter: 2014Q1

REPORT INFORMATION
  Report Type: Spontaneous
  Country: US (occurrence: None)
  Receive Date: 20131230
  Receipt Date: 20140122
  Transmission Date: 20141002
  Serious: Yes (Hospitalization)
  Sender: FDA-Public Use
  Company Number: 2013US002911

PATIENT
  Age: 66 Year
  Sex: Male

DRUGS (13)
  1. PONATINIB (AP24534) TABLET [Suspect]
     Indication: GASTROINTESTINAL STROMAL TUMOUR
     Route: 048
     Dates: start: 20131003
  2. METOPROLOL (METOPROLOL TARTRATE) [Concomitant]
  3. ASPIRIN (ACETYLSALICYLIC ACID) [Concomitant]
  4. TRIAMTERENE AND HYDROCHLOROTHIAZIDE (HYDROCHLOROTHIAZIDE, TRIAMTERENE) [Concomitant]
  5. NORVASC (AMLODIPINE BESILATE) [Concomitant]
  6. POTASSIUM (POTASSIUM) [Concomitant]
  7. ZOCOR (SIMVASTATIN) [Concomitant]
  8. FISH OIL (FISH OIL) [Concomitant]
  9. GOLD BOND MEDICATED (TALC, ZINC OXIDE) [Concomitant]
  10. TRIAMCINOLONE (TRIAMCINOLONE) [Concomitant]
  11. ECONAZOLE NITRATE (ECONAZOLE NITRATE) [Concomitant]
  12. COMPAZINE (PROCHLORPERAZINE EDISYLATE) [Concomitant]
  13. ALTACE (RAMIPRIL) [Concomitant]

REACTIONS (2)
  - Diverticulitis [None]
  - Abscess intestinal [None]
